FAERS Safety Report 26099227 (Version 1)
Quarter: 2025Q4

REPORT INFORMATION
  Report Type: Spontaneous
  Country: US (occurrence: US)
  Receive Date: 20251128
  Receipt Date: 20251128
  Transmission Date: 20260117
  Serious: No
  Sender: ROCHE
  Company Number: US-ROCHE-10000438793

PATIENT
  Sex: Female

DRUGS (6)
  1. ERIVEDGE [Suspect]
     Active Substance: VISMODEGIB
     Indication: Benign neoplasm of skin
     Dosage: TAKE 1 CAPSULE BY MOUTH EVERY DAY
     Route: 048
  2. ESCITALOPRAM TAB 5MG [Concomitant]
  3. FLECAINIDE A TAB 50MG [Concomitant]
  4. METOPROLOL S TB2 50MG [Concomitant]
  5. LOSARTAN POTASSIUM [Concomitant]
     Active Substance: LOSARTAN POTASSIUM
  6. ELIQUIS [Concomitant]
     Active Substance: APIXABAN

REACTIONS (4)
  - Erythema of eyelid [Not Recovered/Not Resolved]
  - Dacryocystitis [Not Recovered/Not Resolved]
  - Eye pruritus [Not Recovered/Not Resolved]
  - Lagophthalmos [Not Recovered/Not Resolved]
